FAERS Safety Report 8595958-3 (Version None)
Quarter: 2012Q3

REPORT INFORMATION
  Report Type: 
  Country: None (occurrence: None)
  Receive Date: 20120815
  Receipt Date: 20120806
  Transmission Date: 20120928
  Serious: Yes (Hospitalization)
  Sender: FDA-Public Use
  Company Number: SK-JNJFOC-20120802927

PATIENT
  Sex: Male
  Weight: 99 kg

DRUGS (2)
  1. TOPICAL CORTICOSTEROIDS [Concomitant]
     Route: 061
  2. USTEKINUMAB [Suspect]
     Indication: PSORIASIS
     Route: 058
     Dates: start: 20100401

REACTIONS (1)
  - SYNCOPE [None]
